FAERS Safety Report 5364210-1 (Version None)
Quarter: 2007Q2

REPORT INFORMATION
  Report Type: 
  Country: None (occurrence: None)
  Receive Date: 20070620
  Receipt Date: 20070614
  Transmission Date: 20071010
  Serious: Yes (Hospitalization)
  Sender: FDA-Public Use
  Company Number: JP-BOEHRINGER INGELHEIM PHARMACEUTICALS, INC.-2006-BP-08880NB

PATIENT
  Sex: Female

DRUGS (2)
  1. BI-SIFROL TABLETS [Suspect]
     Indication: PARKINSON'S DISEASE
     Route: 048
     Dates: start: 20041025
  2. NEODOPASTON (LEVODOPA) [Suspect]
     Indication: PARKINSON'S DISEASE
     Route: 048
     Dates: start: 20020816

REACTIONS (2)
  - BLOOD UREA INCREASED [None]
  - HOSPITALISATION [None]
